FAERS Safety Report 20657795 (Version 1)
Quarter: 2022Q1

REPORT INFORMATION
  Report Type: Spontaneous
  Country: US (occurrence: None)
  Receive Date: 20220330
  Receipt Date: 20220330
  Transmission Date: 20220423
  Serious: No
  Sender: FDA-Public Use
  Company Number: None

PATIENT
  Sex: Female

DRUGS (1)
  1. CAPECITABINE [Suspect]
     Active Substance: CAPECITABINE
     Indication: Breast cancer
     Dosage: OTHER QUANTITY : 2 TABS AM AND 1 TA;?OTHER FREQUENCY : 14 DAYS ON AND 14 ;?
     Route: 048
     Dates: start: 202003

REACTIONS (1)
  - Haemoglobin decreased [None]
